FAERS Safety Report 8509754-6 (Version None)
Quarter: 2012Q3

REPORT INFORMATION
  Report Type: 
  Country: None (occurrence: None)
  Receive Date: 20120713
  Receipt Date: 20120210
  Transmission Date: 20120928
  Serious: Yes (Hospitalization)
  Sender: FDA-Public Use
  Company Number: NL-BAXTER-2012BH004837

PATIENT
  Age: 75 Year
  Sex: Female

DRUGS (2)
  1. EXTRANEAL [Suspect]
     Dosage: 10 HR NIGHTTIME DWELL
     Route: 033
     Dates: start: 20040203
  2. PHYSIOSOL IN PLASTIC CONTAINER [Suspect]
     Dosage: DAYTIME 2X4HR 1X6HR
     Route: 033
     Dates: start: 20040203

REACTIONS (2)
  - SEPSIS [None]
  - PERITONITIS [None]
